FAERS Safety Report 6414006-4 (Version None)
Quarter: 2009Q4

REPORT INFORMATION
  Report Type: 
  Country: None (occurrence: None)
  Receive Date: 20091026
  Receipt Date: 20091014
  Transmission Date: 20100525
  Serious: Yes (Other)
  Sender: FDA-Public Use
  Company Number: PHHY2009JP44770

PATIENT
  Age: 70 Year
  Sex: Female

DRUGS (1)
  1. GLEEVEC [Suspect]

REACTIONS (4)
  - MUCOSAL HAEMORRHAGE [None]
  - PLATELET COUNT DECREASED [None]
  - RASH [None]
  - TOXIC SKIN ERUPTION [None]
